FAERS Safety Report 21223492 (Version 3)
Quarter: 2022Q4

REPORT INFORMATION
  Report Type: Report from Study
  Country: US (occurrence: US)
  Receive Date: 20220817
  Receipt Date: 20221020
  Transmission Date: 20230113
  Serious: Yes (Hospitalization, Other)
  Sender: FDA-Public Use
  Company Number: US-OTSUKA PHARMACEUTICAL NETHERLANDS B.V.-AUR-002094

PATIENT
  Sex: Female

DRUGS (5)
  1. LUPKYNIS [Suspect]
     Active Substance: VOCLOSPORIN
     Indication: Lupus nephritis
     Dosage: 23.7 MILLIGRAM, BID
     Route: 048
     Dates: start: 20220524
  2. LUPKYNIS [Suspect]
     Active Substance: VOCLOSPORIN
     Dosage: 15.8 MGS IN THE AM AND 7.9 MGS IN THE PM
     Route: 048
  3. LUPKYNIS [Suspect]
     Active Substance: VOCLOSPORIN
     Dosage: 15.8 MILLIGRAM, BID
     Route: 048
  4. LUPKYNIS [Suspect]
     Active Substance: VOCLOSPORIN
     Dosage: 7.9 MILLIGRAM, BID
     Route: 048
  5. CHLORTHALIDONE [Concomitant]
     Active Substance: CHLORTHALIDONE
     Indication: Product used for unknown indication

REACTIONS (4)
  - Blister [Unknown]
  - Cellulitis [Unknown]
  - Hypertension [Unknown]
  - Hypersensitivity [Unknown]
